FAERS Safety Report 6627031-5 (Version None)
Quarter: 2010Q1

REPORT INFORMATION
  Report Type: 
  Country: None (occurrence: None)
  Receive Date: 20100311
  Receipt Date: 20091222
  Transmission Date: 20100710
  Serious: No
  Sender: FDA-Public Use
  Company Number: US-KINGPHARMUSA00001-K200901616

PATIENT
  Age: 38 Year
  Sex: Female
  Weight: 123 kg

DRUGS (1)
  1. EMBEDA [Suspect]
     Indication: BACK PAIN
     Dosage: 30 MG, BID
     Route: 048
     Dates: start: 20091209, end: 20091216

REACTIONS (10)
  - ABDOMINAL DISCOMFORT [None]
  - ANXIETY [None]
  - DEPRESSION [None]
  - INSOMNIA [None]
  - MALAISE [None]
  - MICTURITION URGENCY [None]
  - MOOD SWINGS [None]
  - NERVOUSNESS [None]
  - NIGHTMARE [None]
  - THIRST [None]
